FAERS Safety Report 8216890-0 (Version None)
Quarter: 2012Q1

REPORT INFORMATION
  Report Type: 
  Country: None (occurrence: None)
  Receive Date: 20120317
  Receipt Date: 20120306
  Transmission Date: 20120608
  Serious: Yes (Hospitalization, Other)
  Sender: FDA-Public Use
  Company Number: FR-ACCORD-012293

PATIENT
  Age: 53 Year
  Sex: Female

DRUGS (3)
  1. OXALIPLATIN [Suspect]
     Indication: BREAST CANCER
  2. GEMCITABINE [Suspect]
     Indication: BREAST CANCER
  3. BEVACIZUMAB [Suspect]
     Indication: BREAST CANCER
     Dosage: 5 MG/KG Q. 2 WEEKS

REACTIONS (4)
  - OFF LABEL USE [None]
  - SMALL INTESTINAL PERFORATION [None]
  - JEJUNAL ULCER [None]
  - INFECTIOUS PERITONITIS [None]
